FAERS Safety Report 12906576 (Version 1)
Quarter: 2016Q4

REPORT INFORMATION
  Report Type: Spontaneous
  Country: US (occurrence: US)
  Receive Date: 20161101
  Receipt Date: 20161101
  Transmission Date: 20170207
  Serious: Yes (Hospitalization)
  Sender: FDA-Public Use
  Company Number: None

PATIENT
  Age: 52 Year
  Sex: Female
  Weight: 71 kg

DRUGS (1)
  1. EMPAGLIFLOZIN [Suspect]
     Active Substance: EMPAGLIFLOZIN
     Indication: DIABETES MELLITUS
     Route: 048
     Dates: start: 20161018, end: 20161019

REACTIONS (4)
  - Cholecystitis [None]
  - Metabolic acidosis [None]
  - Diabetic ketoacidosis [None]
  - Cholelithiasis [None]

NARRATIVE: CASE EVENT DATE: 20161019
